FAERS Safety Report 25911767 (Version 1)
Quarter: 2025Q4

REPORT INFORMATION
  Report Type: Spontaneous
  Country: US (occurrence: US)
  Receive Date: 20251013
  Receipt Date: 20251013
  Transmission Date: 20260117
  Serious: No
  Sender: RANBAXY
  Company Number: US-SUN PHARMACEUTICAL INDUSTRIES LTD-2024R1-467781

PATIENT
  Age: 27 Year
  Sex: Female

DRUGS (2)
  1. WINLEVI [Suspect]
     Active Substance: CLASCOTERONE
     Indication: Acne
     Dosage: UNK, BID
     Route: 061
     Dates: start: 202309
  2. WINLEVI [Suspect]
     Active Substance: CLASCOTERONE
     Dosage: UNK
     Route: 061
     Dates: start: 202407, end: 202408

REACTIONS (3)
  - Poor quality product administered [Unknown]
  - Product physical issue [Unknown]
  - Therapy cessation [Unknown]

NARRATIVE: CASE EVENT DATE: 20240701
